FAERS Safety Report 10246621 (Version 1)
Quarter: 2014Q2

REPORT INFORMATION
  Report Type: Report from Study
  Country: US (occurrence: US)
  Receive Date: 20140619
  Receipt Date: 20140619
  Transmission Date: 20141212
  Serious: Yes (Other)
  Sender: FDA-Public Use
  Company Number: US-BAXTER-2014BAX031343

PATIENT
  Age: 62 Year
  Sex: Male

DRUGS (1)
  1. GAMMAGARD LIQUID [Suspect]
     Indication: PRODUCT USED FOR UNKNOWN INDICATION
     Route: 042

REACTIONS (2)
  - Localised infection [Not Recovered/Not Resolved]
  - Wrong technique in drug usage process [Unknown]
